FAERS Safety Report 4329772-1 (Version None)
Quarter: 2004Q2

REPORT INFORMATION
  Report Type: 
  Country: None (occurrence: None)
  Receive Date: 20040401
  Receipt Date: 20040127
  Transmission Date: 20050107
  Serious: Yes (Hospitalization)
  Sender: FDA-Public Use
  Company Number: US-BRISTOL-MYERS SQUIBB COMPANY-12488623

PATIENT
  Age: 52 Year
  Sex: Female
  Weight: 42 kg

DRUGS (5)
  1. CISPLATIN [Suspect]
     Indication: CERVIX CARCINOMA
     Dates: start: 20040524, end: 20040524
  2. RADIOTHERAPY [Suspect]
     Indication: CERVIX CARCINOMA
     Dosage: 50.4 GY
     Dates: start: 20030524, end: 20030524
  3. VITAMIN K TAB [Concomitant]
  4. AMINO ACIDS [Concomitant]
  5. KETOROLAC [Concomitant]

REACTIONS (5)
  - ANAEMIA [None]
  - DRUG TOXICITY [None]
  - PERITONITIS [None]
  - PROCTITIS [None]
  - RECTAL HAEMORRHAGE [None]
